FAERS Safety Report 16241143 (Version 1)
Quarter: 2019Q2

REPORT INFORMATION
  Report Type: Spontaneous
  Country: IL (occurrence: IL)
  Receive Date: 20190425
  Receipt Date: 20190425
  Transmission Date: 20190711
  Serious: Yes (Other)
  Sender: FDA-Public Use
  Company Number: IL-BAXTER-2019BAX008151

PATIENT
  Age: 1 Year
  Sex: Female

DRUGS (12)
  1. SODIUM CHLORIDE. [Suspect]
     Active Substance: SODIUM CHLORIDE
     Indication: GASTROINTESTINAL DISORDER CONGENITAL
     Route: 042
     Dates: start: 201904
  2. STERILE WATER FOR INJECTION [Suspect]
     Active Substance: WATER
     Indication: GASTROINTESTINAL DISORDER CONGENITAL
     Dosage: WATER FOR INJECTION 1ML/ML (IMPORTED FROM MARION NC, USA)
     Route: 042
     Dates: start: 201904
  3. PEDITRACE [Suspect]
     Active Substance: CUPRIC CHLORIDE\MANGANESE CHLORIDE\POTASSIUM IODIDE\SODIUM FLUORIDE\SODIUM SELENITE\ZINC CHLORIDE
     Indication: GASTROINTESTINAL DISORDER CONGENITAL
     Route: 042
     Dates: start: 201904
  4. CALCIUM GLUCONATE. [Suspect]
     Active Substance: CALCIUM GLUCONATE
     Indication: GASTROINTESTINAL DISORDER CONGENITAL
     Route: 042
     Dates: start: 201904
  5. SODIUM GLYCEROPHOSPHATE [Suspect]
     Active Substance: SODIUM GLYCEROPHOSPHATE
     Indication: GASTROINTESTINAL DISORDER CONGENITAL
     Route: 042
     Dates: start: 201904
  6. SOLUVIT N [Suspect]
     Active Substance: VITAMINS
     Indication: GASTROINTESTINAL DISORDER CONGENITAL
     Route: 042
     Dates: start: 201904
  7. VITALIPID N INFANT [Suspect]
     Active Substance: .ALPHA.-TOCOPHEROL, DL-\ERGOCALCIFEROL\PHYTONADIONE\VITAMIN A PALMITATE
     Indication: GASTROINTESTINAL DISORDER CONGENITAL
     Route: 042
     Dates: start: 201904
  8. SMOFLIPID [Suspect]
     Active Substance: FISH OIL\MEDIUM-CHAIN TRIGLYCERIDES\OLIVE OIL\SOYBEAN OIL
     Indication: GASTROINTESTINAL DISORDER CONGENITAL
     Route: 042
     Dates: start: 201904
  9. GLUCOSE 50% W/V CONCENTRATE FOR SOLUTION FOR INFUSION [Suspect]
     Active Substance: DEXTROSE
     Indication: GASTROINTESTINAL DISORDER CONGENITAL
     Dosage: DEXTROSE 55%W/V (IMPORTED FROM UK)
     Route: 042
     Dates: start: 201904
  10. MAGNESIUM SULFATE. [Suspect]
     Active Substance: MAGNESIUM SULFATE
     Indication: GASTROINTESTINAL DISORDER CONGENITAL
     Route: 042
     Dates: start: 201904
  11. PRIMENE [Suspect]
     Active Substance: ALANINE\ARGININE\ASPARTIC ACID\CYSTEINE\GLUTAMIC ACID\GLYCINE\HISTIDINE\ISOLEUCINE\LEUCINE\LYSINE\METHIONINE\ORNITHINE HYDROCHLORIDE\PHENYLALANINE\PROLINE\SERINE\TAURINE\THREONINE\TRYPTOPHAN\TYROSINE\VALINE
     Indication: GASTROINTESTINAL DISORDER CONGENITAL
     Dosage: PRIMENE 10% (IMPORTED FROM ITALY)
     Route: 042
     Dates: start: 201904
  12. POTASSIUM CHLORIDE. [Suspect]
     Active Substance: POTASSIUM CHLORIDE
     Indication: GASTROINTESTINAL DISORDER CONGENITAL
     Route: 042
     Dates: start: 201904

REACTIONS (1)
  - Enterococcal bacteraemia [Recovering/Resolving]

NARRATIVE: CASE EVENT DATE: 201904
